FAERS Safety Report 14557059 (Version 2)
Quarter: 2018Q1

REPORT INFORMATION
  Report Type: Report from Study
  Country: CN (occurrence: CN)
  Receive Date: 20180221
  Receipt Date: 20180313
  Transmission Date: 20180509
  Serious: Yes (Hospitalization)
  Sender: FDA-Public Use
  Company Number: CN-ROCHE-2070335

PATIENT
  Sex: Female
  Weight: 45 kg

DRUGS (1)
  1. AVASTIN [Suspect]
     Active Substance: BEVACIZUMAB
     Indication: COLORECTAL CANCER
     Route: 041
     Dates: start: 20170426

REACTIONS (7)
  - Asthenia [Unknown]
  - Platelet count decreased [Unknown]
  - Bedridden [Unknown]
  - White blood cell count decreased [Unknown]
  - Anaemia [Unknown]
  - Diarrhoea [Unknown]
  - Peripheral swelling [Unknown]
